FAERS Safety Report 22892273 (Version 13)
Quarter: 2024Q4

REPORT INFORMATION
  Report Type: Spontaneous
  Country: CA (occurrence: CA)
  Receive Date: 20230901
  Receipt Date: 20241203
  Transmission Date: 20250114
  Serious: Yes (Other)
  Sender: CELLTRION
  Company Number: CA-CELLTRION INC.-2023CA015503

PATIENT

DRUGS (17)
  1. INFLECTRA [Suspect]
     Active Substance: INFLIXIMAB-DYYB
     Indication: Crohn^s disease
     Dosage: 5 MG/KG WEEK 0, 2, 6 AND Q8 WEEKS
     Route: 042
     Dates: start: 20230712
  2. INFLECTRA [Suspect]
     Active Substance: INFLIXIMAB-DYYB
     Dosage: 460 MG (5 MG/KG 8 WEEKS (W2), WEEK 0, 2, 6 AND Q8 WEEKS
     Route: 042
     Dates: start: 20230727
  3. INFLECTRA [Suspect]
     Active Substance: INFLIXIMAB-DYYB
     Dosage: 460 MG (5 MG/KG 8 WEEKS (W2), WEEK 0, 2, 6 AND Q8 WEEKS
     Route: 042
     Dates: start: 20230727
  4. INFLECTRA [Suspect]
     Active Substance: INFLIXIMAB-DYYB
     Dosage: 460 MG (5 MG/KG 8 WEEKS (W2), WEEK 0, 2, 6 AND Q8 WEEKS
     Route: 042
     Dates: start: 20230823
  5. INFLECTRA [Suspect]
     Active Substance: INFLIXIMAB-DYYB
     Dosage: 490 MG, WEEK 0, 2, 6 AND Q8 WEEKS
     Route: 042
     Dates: start: 20231018
  6. INFLECTRA [Suspect]
     Active Substance: INFLIXIMAB-DYYB
     Dosage: 490 MG, AFTER 7 WEEKS AND 5 DAYS (WEEK 0, 2, 6 AND Q8 WEEKS)
     Route: 042
     Dates: start: 20231211
  7. INFLECTRA [Suspect]
     Active Substance: INFLIXIMAB-DYYB
     Dosage: 5 MG/KG, WEEK 0, 2, 6 AND Q8 WEEKS (500 MG, 8 WEEKS)
     Route: 042
     Dates: start: 20240205
  8. INFLECTRA [Suspect]
     Active Substance: INFLIXIMAB-DYYB
     Dosage: 5 MG/KG, WEEK 0, 2, 6 AND Q8 WEEKS
     Route: 042
     Dates: start: 20240402
  9. INFLECTRA [Suspect]
     Active Substance: INFLIXIMAB-DYYB
     Dosage: 5 MG/KG, EVERY 8 WEEKS (WEEK 0, 2, 6 AND Q8 WEEKS)
     Route: 042
     Dates: start: 20240528
  10. INFLECTRA [Suspect]
     Active Substance: INFLIXIMAB-DYYB
     Dosage: 5 MG/KG WEEK 0, 2, 6 AND Q8 WEEKS
     Route: 042
     Dates: start: 20240723
  11. INFLECTRA [Suspect]
     Active Substance: INFLIXIMAB-DYYB
     Dosage: 5 MG/KG WEEK 0, 2, 6 AND Q8 WEEKS
     Route: 042
     Dates: start: 20240912
  12. BUTYLSCOPOLAMINE BROMIDE [Concomitant]
     Active Substance: BUTYLSCOPOLAMINE BROMIDE
     Dosage: 1 DF
  13. CHOLESTYRAMINE [Concomitant]
     Active Substance: CHOLESTYRAMINE
     Dosage: 1 DF, 2X/DAY
     Dates: end: 2024
  14. CHOLESTYRAMINE [Concomitant]
     Active Substance: CHOLESTYRAMINE
     Dosage: 1 DF
     Dates: end: 2024
  15. COLESEVELAM [Concomitant]
     Active Substance: COLESEVELAM
     Dosage: UNK, DAILY
     Dates: start: 2024
  16. PREDNISONE [Concomitant]
     Active Substance: PREDNISONE
     Dosage: UNK
     Dates: start: 202203
  17. PREDNISONE [Concomitant]
     Active Substance: PREDNISONE
     Dosage: 1 DF
     Dates: start: 202305

REACTIONS (12)
  - Ligament rupture [Unknown]
  - Weight increased [Not Recovered/Not Resolved]
  - Condition aggravated [Not Recovered/Not Resolved]
  - Oxygen saturation decreased [Unknown]
  - Drug ineffective [Unknown]
  - Therapeutic response shortened [Unknown]
  - Arthralgia [Unknown]
  - Vomiting [Recovered/Resolved]
  - Pain in extremity [Not Recovered/Not Resolved]
  - Constipation [Recovered/Resolved]
  - Decreased appetite [Unknown]
  - Gout [Not Recovered/Not Resolved]

NARRATIVE: CASE EVENT DATE: 20230101
